FAERS Safety Report 9880961 (Version 1)
Quarter: 2014Q1

REPORT INFORMATION
  Report Type: Spontaneous
  Country: AR (occurrence: None)
  Receive Date: 20140205
  Receipt Date: 20140205
  Transmission Date: 20141002
  Serious: Yes (Disabling, Congenital Anomaly)
  Sender: FDA-Public Use
  Company Number: DAV-AE-MTX-14-02

PATIENT
  Age: 31 Week
  Sex: Female

DRUGS (1)
  1. METHOTREXATE [Suspect]
     Indication: FOETAL EXPOSURE DURING PREGNANCY

REACTIONS (7)
  - Microcephaly [None]
  - Premature baby [None]
  - Limb malformation [None]
  - Neck deformity [None]
  - Finger deformity [None]
  - Maternal drugs affecting foetus [None]
  - Congenital anomaly [None]
